FAERS Safety Report 12833290 (Version 3)
Quarter: 2016Q4

REPORT INFORMATION
  Report Type: Spontaneous
  Country: US (occurrence: US)
  Receive Date: 20161010
  Receipt Date: 20161027
  Transmission Date: 20170207
  Serious: Yes (Hospitalization)
  Sender: FDA-Public Use
  Company Number: US-ACTELION-A-US2016-143225

PATIENT
  Age: 70 Year
  Sex: Female

DRUGS (1)
  1. VELETRI [Suspect]
     Active Substance: EPOPROSTENOL
     Indication: PULMONARY HYPERTENSION
     Dosage: 28 NG/KG, PER MIN
     Route: 042
     Dates: start: 20151130

REACTIONS (5)
  - Dyspnoea [Unknown]
  - Chest pain [Unknown]
  - Device breakage [Unknown]
  - Accidental overdose [Unknown]
  - Seizure [Unknown]
